FAERS Safety Report 8924532 (Version 1)
Quarter: 2012Q4

REPORT INFORMATION
  Report Type: 
  Country: NZ (occurrence: NZ)
  Receive Date: 20121126
  Receipt Date: 20121126
  Transmission Date: 20130627
  Serious: Yes (Other)
  Sender: FDA-Public Use
  Company Number: NZ-PFIZER INC-2012293002

PATIENT
  Age: 65 Year
  Sex: Male

DRUGS (1)
  1. ZARATOR [Suspect]
     Dosage: UNK

REACTIONS (3)
  - Diabetes mellitus [Unknown]
  - Headache [Unknown]
  - Fatigue [Unknown]
